FAERS Safety Report 6344513-4 (Version None)
Quarter: 2009Q3

REPORT INFORMATION
  Report Type: 
  Country: None (occurrence: None)
  Receive Date: 20090903
  Receipt Date: 20090826
  Transmission Date: 20100115
  Serious: Yes (Hospitalization)
  Sender: FDA-Public Use
  Company Number: 20097310

PATIENT
  Sex: Male

DRUGS (1)
  1. LIORESAL [Suspect]
     Indication: MUSCLE SPASTICITY
     Dosage: 1000 MCG, DAILY, INTRATHECAL
     Route: 037

REACTIONS (4)
  - CARDIOVASCULAR DISORDER [None]
  - COGNITIVE DISORDER [None]
  - COMA [None]
  - HYPERTENSIVE ENCEPHALOPATHY [None]
